FAERS Safety Report 18619715 (Version 3)
Quarter: 2021Q1

REPORT INFORMATION
  Report Type: Spontaneous
  Country: US (occurrence: US)
  Receive Date: 20201215
  Receipt Date: 20210104
  Transmission Date: 20210419
  Serious: Yes (Disabling, Other)
  Sender: FDA-Public Use
  Company Number: US-PFIZER INC-2020491900

PATIENT
  Sex: Female

DRUGS (1)
  1. CADUET [Suspect]
     Active Substance: AMLODIPINE BESYLATE\ATORVASTATIN CALCIUM
     Dosage: UNK (QUANTITY FOR 90 DAYS: 90 QTY)

REACTIONS (2)
  - Accident at work [Unknown]
  - Fall [Unknown]

NARRATIVE: CASE EVENT DATE: 20171123
